FAERS Safety Report 10403215 (Version 3)
Quarter: 2020Q2

REPORT INFORMATION
  Report Type: Spontaneous
  Country: US (occurrence: US)
  Receive Date: 20140822
  Receipt Date: 20200407
  Transmission Date: 20200713
  Serious: Yes (Hospitalization, Other)
  Sender: FDA-Public Use
  Company Number: US-JNJFOC-20140312025

PATIENT
  Age: 17 Year
  Sex: Male

DRUGS (2)
  1. RISPERDAL [Suspect]
     Active Substance: RISPERIDONE
     Indication: ANGER
     Dosage: VARYING DOSE OF 0.5 MG AND 1 MG
     Route: 048
     Dates: start: 1997, end: 1998
  2. RISPERDAL [Suspect]
     Active Substance: RISPERIDONE
     Indication: AFFECTIVE DISORDER

REACTIONS (6)
  - Blood cholesterol increased [Not Recovered/Not Resolved]
  - Type 2 diabetes mellitus [Recovering/Resolving]
  - Gynaecomastia [Unknown]
  - Obesity [Not Recovered/Not Resolved]
  - Emotional distress [Unknown]
  - Fatigue [Unknown]

NARRATIVE: CASE EVENT DATE: 1998
